FAERS Safety Report 5201963-7 (Version None)
Quarter: 2007Q1

REPORT INFORMATION
  Report Type: 
  Country: None (occurrence: None)
  Receive Date: 20070104
  Receipt Date: 20070104
  Transmission Date: 20070707
  Serious: Yes (Death)
  Sender: FDA-Public Use
  Company Number: None

PATIENT
  Age: 66 Year
  Sex: Male
  Weight: 54.4316 kg

DRUGS (17)
  1. OXALIPLATIN [Suspect]
     Indication: NEOPLASM MALIGNANT
     Dosage: 130MG/M2 (210MG) IV Q21 D
     Route: 042
     Dates: start: 20061208
  2. DOCETAXEL   80 MG/2 ML [Suspect]
     Indication: NEOPLASM MALIGNANT
     Dosage: 60MG/M2 (97MG) IV Q 21 D
     Route: 042
     Dates: start: 20061208
  3. AL/MGOH [Concomitant]
  4. ES/VIS [Concomitant]
  5. LIDO/DIPHEN [Concomitant]
  6. CIPROFLOXACIN [Concomitant]
  7. CYCLOBENZAPRINE HCL [Concomitant]
  8. FERROUS SULFATE TAB [Concomitant]
  9. FORMOTEROL FUMARATE [Concomitant]
  10. LEVABUTEROL TART [Concomitant]
  11. LEVOTHYROXINE SODIUM [Concomitant]
  12. METFORMIN [Concomitant]
  13. METOCLOPRAMIDE HCL [Concomitant]
  14. METOPROLOL TARTRATE [Concomitant]
  15. ENSURE PLUS [Concomitant]
  16. THEOPHYLLINE [Concomitant]
  17. TIOTROPIUM [Concomitant]

REACTIONS (4)
  - ASTHENIA [None]
  - FALL [None]
  - HAEMATEMESIS [None]
  - NAUSEA [None]
